FAERS Safety Report 15867028 (Version 1)
Quarter: 2019Q1

REPORT INFORMATION
  Report Type: Spontaneous
  Country: IN (occurrence: IN)
  Receive Date: 20190125
  Receipt Date: 20190125
  Transmission Date: 20190417
  Serious: Yes (Other)
  Sender: FDA-Public Use
  Company Number: IN-ACCORD-103241

PATIENT
  Age: 32 Year
  Sex: Male

DRUGS (4)
  1. DOCETAXEL. [Suspect]
     Active Substance: DOCETAXEL
     Indication: BASAL CELL CARCINOMA
  2. LEUPRORELIN/LEUPRORELIN ACETATE [Suspect]
     Active Substance: LEUPROLIDE ACETATE
     Indication: ANDROGEN THERAPY
     Dosage: ANDROGEN DEPRIVATION THERAPY
  3. DOCETAXEL. [Suspect]
     Active Substance: DOCETAXEL
     Indication: METASTASES TO LUNG
  4. LEUPRORELIN [Suspect]
     Active Substance: LEUPROLIDE ACETATE
     Indication: BASAL CELL CARCINOMA
     Dosage: ANDROGEN DEPRIVATION THERAPY

REACTIONS (4)
  - Penile pain [Unknown]
  - Renal impairment [Unknown]
  - Hydronephrosis [Unknown]
  - Pain [Unknown]
